FAERS Safety Report 16747678 (Version 3)
Quarter: 2019Q3

REPORT INFORMATION
  Report Type: Report from Study
  Country: JP (occurrence: JP)
  Receive Date: 20190827
  Receipt Date: 20190909
  Transmission Date: 20191005
  Serious: Yes (Death, Hospitalization, Other)
  Sender: FDA-Public Use
  Company Number: JP-ASTRAZENECA-2019SE81863

PATIENT
  Age: 71 Year
  Sex: Male
  Weight: 53 kg

DRUGS (1)
  1. IMFINZI [Suspect]
     Active Substance: DURVALUMAB
     Indication: NON-SMALL CELL LUNG CANCER
     Route: 042
     Dates: start: 20190510, end: 20190510

REACTIONS (3)
  - Sepsis [Fatal]
  - Radiation pneumonitis [Recovering/Resolving]
  - Pneumonia bacterial [Unknown]

NARRATIVE: CASE EVENT DATE: 20190517
